FAERS Safety Report 14480858 (Version 1)
Quarter: 2018Q1

REPORT INFORMATION
  Report Type: Spontaneous
  Country: IT (occurrence: IT)
  Receive Date: 20180202
  Receipt Date: 20180202
  Transmission Date: 20180509
  Serious: Yes (Hospitalization)
  Sender: FDA-Public Use
  Company Number: IT-TEVA-2018-IT-851599

PATIENT
  Age: 60 Year
  Sex: Female

DRUGS (7)
  1. GLUCOPHAGE 850 MG COMPRESSE RIVESTITE CON FILM [Concomitant]
     Route: 048
  2. FLUSPIRAL [Concomitant]
     Active Substance: FLUTICASONE PROPIONATE
  3. RAMIPRIL. [Suspect]
     Active Substance: RAMIPRIL
     Indication: HYPERTENSION
     Route: 048
     Dates: start: 20170823, end: 20170823
  4. NASONEX [Concomitant]
     Active Substance: MOMETASONE FUROATE
  5. XYZAL [Concomitant]
     Active Substance: LEVOCETIRIZINE DIHYDROCHLORIDE
  6. VENTOLIN [Concomitant]
     Active Substance: ALBUTEROL SULFATE
  7. GLUCOPHAGE 1000 MG COMPRESSE RIVESTITE CON FILM [Concomitant]
     Route: 048

REACTIONS (2)
  - Hypersensitivity [Unknown]
  - Acute respiratory failure [Unknown]

NARRATIVE: CASE EVENT DATE: 20170823
